FAERS Safety Report 19579604 (Version 1)
Quarter: 2021Q3

REPORT INFORMATION
  Report Type: Spontaneous
  Country: US (occurrence: US)
  Receive Date: 20210720
  Receipt Date: 20210720
  Transmission Date: 20211014
  Serious: Yes (Other)
  Sender: FDA-Public Use
  Company Number: US-NOVOPROD-829521

PATIENT
  Sex: Female

DRUGS (3)
  1. TRESIBA [Suspect]
     Active Substance: INSULIN DEGLUDEC
     Indication: DIABETES MELLITUS
     Dosage: UNK
     Route: 058
     Dates: start: 2017, end: 2018
  2. FIASP [Suspect]
     Active Substance: INSULIN ASPART
     Indication: DIABETES MELLITUS
     Dosage: 4?8 UNITS/DOSE
     Route: 058
     Dates: start: 2020, end: 2021
  3. NOVOLOG [Suspect]
     Active Substance: INSULIN ASPART
     Indication: DIABETES MELLITUS
     Dosage: 4?8 UNITS/DOSE
     Route: 058
     Dates: start: 2019, end: 2020

REACTIONS (2)
  - Allergic reaction to excipient [Not Recovered/Not Resolved]
  - Blood glucose increased [Not Recovered/Not Resolved]
